FAERS Safety Report 9699772 (Version 1)
Quarter: 2013Q4

REPORT INFORMATION
  Report Type: Spontaneous
  Country: US (occurrence: US)
  Receive Date: 20131120
  Receipt Date: 20131120
  Transmission Date: 20140711
  Serious: Yes (Hospitalization, Other)
  Sender: FDA-Public Use
  Company Number: US-GILEAD-2013-0088099

PATIENT
  Sex: Female

DRUGS (3)
  1. LETAIRIS [Suspect]
     Indication: PULMONARY HYPERTENSION
     Dosage: 5 MG, QD
     Dates: start: 20130920, end: 20131029
  2. IMDUR [Concomitant]
     Dosage: 30 MG, UNK
  3. IMDUR [Concomitant]
     Dosage: 60 MG, UNK

REACTIONS (4)
  - Dyspnoea [Recovering/Resolving]
  - Fluid overload [Recovered/Resolved]
  - Drug ineffective [Unknown]
  - Oedema [Unknown]
